FAERS Safety Report 12447970 (Version 1)
Quarter: 2016Q2

REPORT INFORMATION
  Report Type: Spontaneous
  Country: GB (occurrence: GB)
  Receive Date: 20160608
  Receipt Date: 20160608
  Transmission Date: 20160815
  Serious: Yes (Other)
  Sender: FDA-Public Use
  Company Number: GB-WATSON-2016-11671

PATIENT
  Age: 51 Year
  Sex: Male

DRUGS (2)
  1. ALFENTANIL. [Suspect]
     Active Substance: ALFENTANIL
     Indication: SEDATION
     Dosage: UNK
     Route: 065
  2. PROPOFOL (UNKNOWN) [Suspect]
     Active Substance: PROPOFOL
     Indication: SEDATION
     Dosage: UNK
     Route: 065

REACTIONS (1)
  - Generalised tonic-clonic seizure [Recovered/Resolved]
